FAERS Safety Report 12263537 (Version 1)
Quarter: 2016Q2

REPORT INFORMATION
  Report Type: Spontaneous
  Country: US (occurrence: US)
  Receive Date: 20160413
  Receipt Date: 20160413
  Transmission Date: 20160815
  Serious: No
  Sender: FDA-Public Use
  Company Number: US-JNJFOC-20160318794

PATIENT
  Age: 82 Year
  Sex: Female
  Weight: 75.3 kg

DRUGS (1)
  1. TYLENOL REGULAR STRENGTH [Suspect]
     Active Substance: ACETAMINOPHEN
     Indication: PRODUCT USED FOR UNKNOWN INDICATION
     Dosage: 2 CAPLETS
     Route: 048

REACTIONS (3)
  - Choking sensation [Recovered/Resolved]
  - Product difficult to swallow [Unknown]
  - Product size issue [Unknown]
